FAERS Safety Report 17483535 (Version 1)
Quarter: 2020Q1

REPORT INFORMATION
  Report Type: Spontaneous
  Country: US (occurrence: US)
  Receive Date: 20200301
  Receipt Date: 20200301
  Transmission Date: 20200409
  Serious: Yes (Other)
  Sender: FDA-Public Use
  Company Number: None

PATIENT
  Age: 37 Year
  Sex: Male

DRUGS (5)
  1. CLOZAPINE. [Concomitant]
     Active Substance: CLOZAPINE
  2. PALIPERIDONE. [Concomitant]
     Active Substance: PALIPERIDONE
  3. CLOZAPINE. [Suspect]
     Active Substance: CLOZAPINE
  4. PALIPERIDONE. [Suspect]
     Active Substance: PALIPERIDONE
  5. DEPAKOTE [Suspect]
     Active Substance: DIVALPROEX SODIUM

REACTIONS (1)
  - Fall [None]

NARRATIVE: CASE EVENT DATE: 20200227
